FAERS Safety Report 14569092 (Version 1)
Quarter: 2018Q1

REPORT INFORMATION
  Report Type: Spontaneous
  Country: GR (occurrence: GR)
  Receive Date: 20180223
  Receipt Date: 20180223
  Transmission Date: 20180509
  Serious: Yes (Other)
  Sender: FDA-Public Use
  Company Number: GR-009507513-1802GRC007910

PATIENT
  Age: 65 Year
  Sex: Female

DRUGS (1)
  1. LIPTRUZET [Suspect]
     Active Substance: ATORVASTATIN CALCIUM\EZETIMIBE
     Indication: TYPE IIA HYPERLIPIDAEMIA
     Dosage: 10+20 MG/TAB
     Route: 048
     Dates: end: 20180126

REACTIONS (12)
  - Vision blurred [Recovered/Resolved]
  - Flatulence [Recovering/Resolving]
  - Sleep disorder [Unknown]
  - Muscle spasms [Recovering/Resolving]
  - Stress [Unknown]
  - Malaise [Recovering/Resolving]
  - Breast enlargement [Recovering/Resolving]
  - Panic disorder [Unknown]
  - Myalgia [Recovering/Resolving]
  - Asthenia [Recovering/Resolving]
  - Muscular weakness [Recovering/Resolving]
  - Tic [Recovered/Resolved]
